FAERS Safety Report 4597381-5 (Version None)
Quarter: 2005Q1

REPORT INFORMATION
  Report Type: 
  Country: None (occurrence: None)
  Receive Date: 20050303
  Receipt Date: 20041028
  Transmission Date: 20050727
  Serious: No
  Sender: FDA-Public Use
  Company Number: US-GLAXOSMITHKLINE-A0531741A

PATIENT
  Age: 40 Year
  Sex: Male

DRUGS (3)
  1. REQUIP [Suspect]
     Indication: RESTLESS LEGS SYNDROME
     Dosage: .5MG AS REQUIRED
     Route: 048
     Dates: start: 20041007
  2. LAMICTAL [Concomitant]
  3. ALLEGRA [Concomitant]

REACTIONS (2)
  - HEART RATE INCREASED [None]
  - STOMACH DISCOMFORT [None]
